FAERS Safety Report 23648604 (Version 2)
Quarter: 2024Q2

REPORT INFORMATION
  Report Type: Spontaneous
  Country: ES (occurrence: ES)
  Receive Date: 20240319
  Receipt Date: 20240405
  Transmission Date: 20240715
  Serious: Yes (Hospitalization, Other)
  Sender: FDA-Public Use
  Company Number: ES-UCBSA-2024013441

PATIENT
  Age: 0 Year
  Sex: Male
  Weight: 3.9 kg

DRUGS (10)
  1. VIMPAT [Suspect]
     Active Substance: LACOSAMIDE
     Indication: Status epilepticus
     Dosage: 10 MILLIGRAM/KILOGRAM, 2X/DAY (BID)
     Route: 042
     Dates: start: 20220419, end: 20220615
  2. VIMPAT [Suspect]
     Active Substance: LACOSAMIDE
     Indication: Off label use
  3. PHENYTOIN [Suspect]
     Active Substance: PHENYTOIN
     Indication: Status epilepticus
     Dosage: 15 MILLIGRAM EVERY 8 HOURS
     Route: 042
     Dates: start: 20220419, end: 20220615
  4. PERAMPANEL [Suspect]
     Active Substance: PERAMPANEL
     Indication: Status epilepticus
     Dosage: 1 MILLIGRAM, ONCE DAILY (QD), PERCUTANEOUS ENDOSCOPIC GASTROSTOMY
     Dates: start: 20220419, end: 20220615
  5. MIDAZOLAM [Suspect]
     Active Substance: MIDAZOLAM
     Indication: Status epilepticus
     Dosage: 0.5 MILLIGRAM/KILOGRAM
  6. MIDAZOLAM [Suspect]
     Active Substance: MIDAZOLAM
     Dosage: 0.6 MILLIGRAM EVERY 1 HOUR (PERFUSION)
     Route: 042
     Dates: start: 20220419, end: 20220429
  7. KETAMINE [Suspect]
     Active Substance: KETAMINE
     Indication: Status epilepticus
     Dosage: 5.8 MILLIGRAM EVERY 1 HOUR (PERFUSION)
     Route: 042
     Dates: start: 20220419, end: 20220429
  8. THIOPENTAL [Concomitant]
     Active Substance: THIOPENTAL
     Indication: Status epilepticus
     Dosage: 8 MILLIGRAM EVERY 1 HOUR (PERFUSION)
     Route: 042
     Dates: start: 20220429, end: 20220615
  9. PROPOFOL [Concomitant]
     Active Substance: PROPOFOL
     Indication: Status epilepticus
     Dosage: 8 MILLIGRAM EVERY 1 HOUR (PERFUSION)
     Route: 042
     Dates: start: 20220429, end: 20220615
  10. ACYCLOVIR [Concomitant]
     Active Substance: ACYCLOVIR
     Indication: Coxsackie virus test positive
     Dosage: 10 MILLIGRAM/KILOGRAM EVERY 8 HOURS
     Route: 042

REACTIONS (3)
  - Ileus paralytic [Recovering/Resolving]
  - Multiple-drug resistance [Unknown]
  - Off label use [Unknown]

NARRATIVE: CASE EVENT DATE: 20220419
